FAERS Safety Report 6603692-1 (Version None)
Quarter: 2010Q1

REPORT INFORMATION
  Report Type: 
  Country: None (occurrence: None)
  Receive Date: 20100226
  Receipt Date: 20100128
  Transmission Date: 20100710
  Serious: Yes (Hospitalization, Other)
  Sender: FDA-Public Use
  Company Number: CH-SANOFI-AVENTIS-2010SA002139

PATIENT
  Age: 43 Year
  Sex: Male

DRUGS (2)
  1. OPTIPEN [Suspect]
  2. LANTUS [Suspect]

REACTIONS (2)
  - HYPOGLYCAEMIA [None]
  - ROAD TRAFFIC ACCIDENT [None]
